FAERS Safety Report 16302194 (Version 1)
Quarter: 2019Q2

REPORT INFORMATION
  Report Type: Spontaneous
  Country: US (occurrence: US)
  Receive Date: 20190405
  Receipt Date: 20190405
  Transmission Date: 20190711
  Serious: Yes (Hospitalization)
  Sender: FDA-Public Use
  Company Number: None

PATIENT
  Age: 54 Year
  Sex: Male

DRUGS (13)
  1. DOXAZOSIN [Concomitant]
     Active Substance: DOXAZOSIN\DOXAZOSIN MESYLATE
  2. GLYBURIDO [Concomitant]
  3. PARICALCITOL CAP [Concomitant]
  4. ESCITALOPRAM [Concomitant]
     Active Substance: ESCITALOPRAM OXALATE
  5. METOPROL TAR [Concomitant]
  6. BUMETANIDE. [Concomitant]
     Active Substance: BUMETANIDE
  7. PERINDOPRIL [Concomitant]
     Active Substance: PERINDOPRIL
  8. PRENISONE [Concomitant]
  9. MYCOPHENOLATE 250 MG CAP [Suspect]
     Active Substance: MYCOPHENOLIC ACID
     Indication: RENAL TRANSPLANT
     Route: 048
     Dates: start: 20171213
  10. ALLOPURINOL. [Concomitant]
     Active Substance: ALLOPURINOL
  11. SODIUM BICARB [Concomitant]
     Active Substance: SODIUM BICARBONATE
  12. TACROLIMUS  1MG CAP [Suspect]
     Active Substance: TACROLIMUS
     Indication: RENAL TRANSPLANT
     Dosage: ?          OTHER DOSE:FOUR CAPSULES;?
     Route: 048
     Dates: start: 20171213
  13. ATORVASTATIN [Concomitant]
     Active Substance: ATORVASTATIN

REACTIONS (1)
  - Dialysis [None]

NARRATIVE: CASE EVENT DATE: 2019
